FAERS Safety Report 13576707 (Version 16)
Quarter: 2018Q4

REPORT INFORMATION
  Report Type: Report from Study
  Country: CA (occurrence: CA)
  Receive Date: 20170524
  Receipt Date: 20181119
  Transmission Date: 20190204
  Serious: Yes (Hospitalization, Other)
  Sender: FDA-Public Use
  Company Number: CA-GLAXOSMITHKLINE-CA2017GSK077313

PATIENT
  Age: 65 Year
  Sex: Female

DRUGS (38)
  1. CYCLOSPORIN [Suspect]
     Active Substance: CYCLOSPORINE
     Indication: PRODUCT USED FOR UNKNOWN INDICATION
     Dosage: UNK
  2. IODINE. [Suspect]
     Active Substance: IODINE
     Indication: PRODUCT USED FOR UNKNOWN INDICATION
     Dosage: UNK
  3. COSENTYX [Suspect]
     Active Substance: SECUKINUMAB
     Dosage: 300 MG, Z
     Route: 058
     Dates: start: 20171005
  4. DOVOBET [Concomitant]
     Active Substance: BETAMETHASONE\CALCIPOTRIENE
  5. ONE ALPHA [Concomitant]
     Active Substance: ALFACALCIDOL
  6. COSENTYX [Suspect]
     Active Substance: SECUKINUMAB
     Dosage: 300 MG, WE
     Route: 058
     Dates: start: 20170516
  7. COSENTYX [Suspect]
     Active Substance: SECUKINUMAB
     Dosage: 300 MG, WE
     Route: 058
     Dates: start: 20170530
  8. COSENTYX [Suspect]
     Active Substance: SECUKINUMAB
     Dosage: 300 MG, Z
     Route: 058
     Dates: start: 20170704
  9. DIPROSONE [Concomitant]
     Active Substance: BETAMETHASONE DIPROPIONATE
  10. TARO CLOBETASOL [Concomitant]
  11. SYNTHROID [Concomitant]
     Active Substance: LEVOTHYROXINE SODIUM
  12. TERBINAFINE. [Suspect]
     Active Substance: TERBINAFINE
     Indication: PRODUCT USED FOR UNKNOWN INDICATION
     Dosage: UNK
  13. VITAMIN D2 [Suspect]
     Active Substance: ERGOCALCIFEROL
     Indication: PRODUCT USED FOR UNKNOWN INDICATION
     Dosage: UNK
  14. COSENTYX [Suspect]
     Active Substance: SECUKINUMAB
     Dosage: 300 MG, UNK
     Route: 058
     Dates: start: 20171206
  15. OXEZE [Concomitant]
     Active Substance: FORMOTEROL FUMARATE
  16. PREGABALIN. [Concomitant]
     Active Substance: PREGABALIN
  17. NOVOLIN NPH [Concomitant]
     Active Substance: INSULIN HUMAN
  18. NOVORAPID [Concomitant]
     Active Substance: INSULIN ASPART
  19. FUROSEMIDE. [Suspect]
     Active Substance: FUROSEMIDE
     Indication: PRODUCT USED FOR UNKNOWN INDICATION
     Dosage: 40 MG, BID
     Route: 065
  20. METHOTREXATE. [Suspect]
     Active Substance: METHOTREXATE
     Indication: PRODUCT USED FOR UNKNOWN INDICATION
     Dosage: UNK
  21. COSENTYX [Suspect]
     Active Substance: SECUKINUMAB
     Indication: PSORIASIS
     Dosage: 300 MG, WE
     Route: 058
     Dates: start: 20170508
  22. COSENTYX [Suspect]
     Active Substance: SECUKINUMAB
     Dosage: 300 MG, UNK
     Route: 058
     Dates: start: 20180108
  23. DOMPERIDONE [Concomitant]
     Active Substance: DOMPERIDONE
  24. CLONIDINE. [Concomitant]
     Active Substance: CLONIDINE
  25. COSENTYX [Suspect]
     Active Substance: SECUKINUMAB
     Dosage: 300 MG, WE
     Route: 058
     Dates: start: 20170606
  26. COSENTYX [Suspect]
     Active Substance: SECUKINUMAB
     Dosage: 300 MG, Z
     Route: 058
     Dates: start: 20170907
  27. COSENTYX [Suspect]
     Active Substance: SECUKINUMAB
     Dosage: 300 MG, UNK
     Route: 058
     Dates: start: 2017, end: 20171206
  28. KERTYOL (SALICYLIC ACID) [Concomitant]
  29. PULMICORT TURBUHALER [Concomitant]
     Active Substance: BUDESONIDE
  30. ATORVASTATIN [Suspect]
     Active Substance: ATORVASTATIN
     Indication: PRODUCT USED FOR UNKNOWN INDICATION
     Dosage: 40 MG, UNK
     Route: 065
  31. COSENTYX [Suspect]
     Active Substance: SECUKINUMAB
     Dosage: 300 MG, Z
     Route: 058
     Dates: start: 20170807
  32. COSENTYX [Suspect]
     Active Substance: SECUKINUMAB
     Dosage: 300 MG, Z
     Route: 058
     Dates: start: 20170508
  33. OTEZLA [Concomitant]
     Active Substance: APREMILAST
  34. HYDROXYZINE [Concomitant]
     Active Substance: HYDROXYZINE HYDROCHLORIDE
  35. QUETIAPINE. [Suspect]
     Active Substance: QUETIAPINE
     Indication: PRODUCT USED FOR UNKNOWN INDICATION
     Dosage: 50 MG, BID
     Route: 065
  36. ACITRETIN. [Concomitant]
     Active Substance: ACITRETIN
  37. RATIO-TOPILENE [Concomitant]
  38. TIAZAC [Concomitant]
     Active Substance: DILTIAZEM HYDROCHLORIDE

REACTIONS (24)
  - Hypoglycaemia [Unknown]
  - Blood pressure decreased [Unknown]
  - Wrong technique in device usage process [Unknown]
  - Contusion [Unknown]
  - Peripheral swelling [Recovering/Resolving]
  - Incorrect dose administered [Unknown]
  - Dyspnoea [Unknown]
  - Fall [Unknown]
  - Weight decreased [Unknown]
  - Skin discolouration [Unknown]
  - Renal disorder [Unknown]
  - Poor quality sleep [Unknown]
  - Sensory disturbance [Not Recovered/Not Resolved]
  - Heart rate decreased [Unknown]
  - Infection [Unknown]
  - Dysuria [Unknown]
  - Pain in extremity [Recovering/Resolving]
  - Gait inability [Unknown]
  - Pneumonia [Unknown]
  - Skin atrophy [Unknown]
  - Back pain [Unknown]
  - Syncope [Unknown]
  - Anxiety [Recovering/Resolving]
  - Headache [Unknown]

NARRATIVE: CASE EVENT DATE: 201705
